FAERS Safety Report 9374294 (Version 1)
Quarter: 2013Q2

REPORT INFORMATION
  Report Type: Report from Study
  Country: BR (occurrence: BR)
  Receive Date: 20130628
  Receipt Date: 20130628
  Transmission Date: 20140414
  Serious: Yes (Other)
  Sender: FDA-Public Use
  Company Number: PHHY2013BR066022

PATIENT
  Sex: Male
  Weight: 118 kg

DRUGS (11)
  1. EXJADE [Suspect]
     Indication: IRON OVERLOAD
     Dosage: 6 DF, QD
     Dates: end: 20130610
  2. EXJADE [Suspect]
     Dosage: 5 DF, QD
  3. EXJADE [Suspect]
     Dosage: 4 DF, QD
  4. EXJADE [Suspect]
     Dosage: 3 DF, QD
  5. METICORTEN [Concomitant]
     Dosage: UNK UKN, UNK
  6. PANTOPRAZOLE [Concomitant]
     Dosage: 40 MG, UNK
  7. DIACQUA [Concomitant]
     Dosage: 50 MG, UNK
  8. IMOSEC [Concomitant]
     Dosage: UNK UKN, UNK
  9. OSTEONUTRI [Concomitant]
     Dosage: UNK UKN, UNK
  10. CALCIFEROL [Concomitant]
     Dosage: UNK UKN, UNK
  11. BEMINAL [Concomitant]
     Dosage: UNK UKN, UNK

REACTIONS (6)
  - Swelling [Not Recovered/Not Resolved]
  - Poisoning [Unknown]
  - Drug intolerance [Not Recovered/Not Resolved]
  - Weight increased [Recovering/Resolving]
  - Visual acuity reduced [Unknown]
  - Serum ferritin increased [Recovering/Resolving]
